FAERS Safety Report 23828539 (Version 1)
Quarter: 2024Q2

REPORT INFORMATION
  Report Type: Report from Study
  Country: FI (occurrence: FI)
  Receive Date: 20240508
  Receipt Date: 20240508
  Transmission Date: 20240716
  Serious: Yes (Death, Hospitalization)
  Sender: FDA-Public Use
  Company Number: FI-ABBVIE-5749220

PATIENT
  Age: 71 Year
  Sex: Male

DRUGS (3)
  1. CARBIDOPA\LEVODOPA [Suspect]
     Active Substance: CARBIDOPA\LEVODOPA
     Indication: Parkinson^s disease
     Dosage: MD 4ML, CD 5.8ML/H, ED 1ML. 16H TREATMENT?START DATE TEXT: ABOUT TEN YEARS AGO?STOP DATE TEXT: US...
     Route: 050
     Dates: start: 2014
  2. CARBIDOPA\LEVODOPA [Suspect]
     Active Substance: CARBIDOPA\LEVODOPA
  3. MELATONIN [Concomitant]
     Active Substance: MELATONIN
     Indication: Product used for unknown indication
     Dosage: FORM STRENGTH: 5 MILLIGRAM

REACTIONS (9)
  - Brain stem infarction [Fatal]
  - Cardiac failure [Unknown]
  - Hip fracture [Recovered/Resolved]
  - Dizziness [Unknown]
  - Blood pressure fluctuation [Unknown]
  - Atrial fibrillation [Unknown]
  - Orthostatic intolerance [Unknown]
  - Benign prostatic hyperplasia [Unknown]
  - Pain [Unknown]

NARRATIVE: CASE EVENT DATE: 20231001
